FAERS Safety Report 13097054 (Version 1)
Quarter: 2017Q1

REPORT INFORMATION
  Report Type: Spontaneous
  Country: US (occurrence: US)
  Receive Date: 20170106
  Receipt Date: 20170106
  Transmission Date: 20170428
  Serious: No
  Sender: FDA-Public Use
  Company Number: None

PATIENT
  Age: 48 Year
  Sex: Female
  Weight: 70.65 kg

DRUGS (1)
  1. CIPROFLOXACIN HCL [Suspect]
     Active Substance: CIPROFLOXACIN HYDROCHLORIDE
     Indication: URINARY TRACT INFECTION
     Dosage: QUANTITY:6 TABLET(S); EVERY 12 HOURS; ORAL?
     Route: 048
     Dates: start: 20170103, end: 20170106

REACTIONS (3)
  - Pain in extremity [None]
  - No reaction on previous exposure to drug [None]
  - Gait disturbance [None]

NARRATIVE: CASE EVENT DATE: 20170104
